FAERS Safety Report 7282239-3 (Version None)
Quarter: 2011Q1

REPORT INFORMATION
  Report Type: 
  Country: None (occurrence: None)
  Receive Date: 20110209
  Receipt Date: 20110201
  Transmission Date: 20110831
  Serious: Yes (Hospitalization)
  Sender: FDA-Public Use
  Company Number: JP-AMGEN-JPNSP2011000482

PATIENT
  Age: 62 Year
  Sex: Female
  Weight: 50 kg

DRUGS (23)
  1. ADALAT CC [Concomitant]
     Indication: HYPERTENSION
     Dosage: 2 TABLETS PER DAY
     Route: 048
     Dates: start: 20041119
  2. ALLEGRA [Concomitant]
     Indication: HYPERSENSITIVITY
     Dosage: 2 TABLETS PER DAY
     Route: 048
     Dates: start: 20091222
  3. RIMATIL [Concomitant]
     Dosage: 50 MG, 2X/DAY
     Route: 048
     Dates: start: 19980928, end: 20080324
  4. KETOPROFEN [Concomitant]
     Indication: RHEUMATOID ARTHRITIS
     Dosage: UNK
     Dates: end: 20071013
  5. MEPTIN [Concomitant]
     Indication: ASTHMA
     Dosage: UNK
     Dates: start: 20100713
  6. AZULFIDINE [Suspect]
     Indication: RHEUMATOID ARTHRITIS
     Dosage: 500 MG, 2X/DAY
     Route: 048
     Dates: start: 20090811
  7. RIMATIL [Concomitant]
     Indication: RHEUMATOID ARTHRITIS
     Dosage: 50 MG, 3X/DAY
     Route: 048
     Dates: start: 20080325, end: 20100302
  8. PAROTIN [Concomitant]
     Dosage: 2 TABLETS PER DAY
     Route: 048
     Dates: start: 20100427
  9. HYALEIN [Concomitant]
     Indication: SJOGREN'S SYNDROME
     Dosage: UNK
     Route: 031
     Dates: start: 20100303
  10. PREDNISOLONE [Concomitant]
     Dosage: 5 MG, 1X/DAY
     Route: 048
     Dates: start: 20080131, end: 20100301
  11. PREDNISOLONE [Concomitant]
     Dosage: 5 MG, 1X/DAY
     Route: 048
     Dates: end: 19930101
  12. LOXONIN                            /00890701/ [Concomitant]
     Indication: RHEUMATOID ARTHRITIS
     Dosage: 2 TABLETS PER DAY
     Route: 048
     Dates: start: 20070319
  13. ALINAMIN                           /00257802/ [Concomitant]
     Dosage: 50 MG, 1X/DAY
     Route: 048
     Dates: start: 19981013
  14. PAROTIN [Concomitant]
     Indication: SJOGREN'S SYNDROME
     Dosage: 3 TABLETS PER DAY
     Route: 048
     Dates: start: 20100216, end: 20100426
  15. AZULFIDINE [Concomitant]
  16. ENBREL [Suspect]
     Indication: RHEUMATOID ARTHRITIS
     Dosage: 25 MG, 2X/WEEK
     Route: 058
     Dates: start: 20091130, end: 20101216
  17. GASTER                             /00661201/ [Concomitant]
     Indication: GASTRITIS
     Dosage: 20 MG, 1X/DAY
     Route: 048
     Dates: start: 20060828
  18. JUVELA NICOTINATE [Concomitant]
     Dosage: 400 MG, 1X/DAY
     Route: 048
     Dates: start: 19981013
  19. FLUTIDE [Concomitant]
     Indication: ASTHMA
     Dosage: 1 DF, 2X/DAY
     Dates: start: 20100713
  20. PREDNISOLONE [Concomitant]
     Indication: RHEUMATOID ARTHRITIS
     Dosage: 2.5 MG, 1X/DAY
     Route: 048
     Dates: start: 20100302
  21. PREDNISOLONE [Concomitant]
     Dosage: 5 MG, 1X/DAY
     Route: 048
     Dates: start: 20071029, end: 20071213
  22. PREDNISOLONE [Concomitant]
     Dosage: 2.5 MG, 1X/DAY
     Route: 048
     Dates: start: 20071214, end: 20080130
  23. THEO-DUR [Concomitant]
     Indication: ASTHMA
     Dosage: 400 MG, 1X/DAY
     Route: 048
     Dates: start: 19981013

REACTIONS (2)
  - ASTHMA [None]
  - INTERSTITIAL LUNG DISEASE [None]
